FAERS Safety Report 21789366 (Version 1)
Quarter: 2022Q4

REPORT INFORMATION
  Report Type: Report from Study
  Country: US (occurrence: US)
  Receive Date: 20221228
  Receipt Date: 20221228
  Transmission Date: 20230112
  Serious: No
  Sender: FDA-Public Use
  Company Number: US-ABBVIE-4251482

PATIENT
  Sex: Female

DRUGS (1)
  1. IMBRUVICA [Suspect]
     Active Substance: IBRUTINIB
     Indication: B-cell small lymphocytic lymphoma
     Dosage: ONSET OF COMORBIDITY OF SEASONAL ALLERGIES AND SINUSITIS WAS 2022
     Route: 048
     Dates: start: 202202, end: 202207

REACTIONS (2)
  - Seasonal allergy [Unknown]
  - Allergic sinusitis [Unknown]
